FAERS Safety Report 24196965 (Version 1)
Quarter: 2024Q3

REPORT INFORMATION
  Report Type: Spontaneous
  Country: NL (occurrence: NL)
  Receive Date: 20240810
  Receipt Date: 20240810
  Transmission Date: 20241017
  Serious: Yes (Life-Threatening)
  Sender: SHILPA MEDICARE
  Company Number: None

PATIENT
  Age: 77 Year
  Sex: Female
  Weight: 71.7 kg

DRUGS (13)
  1. PEMETREXED [Suspect]
     Active Substance: PEMETREXED
     Indication: Non-small cell lung cancer stage IV
     Dosage: NIET BEKEND, BEHANDELAAR IS LONGARTS IN ST JANSDAL
     Route: 065
     Dates: start: 20240516, end: 20240627
  2. PEMBROLIZUMAB [Suspect]
     Active Substance: PEMBROLIZUMAB
     Indication: Non-small cell lung cancer stage IV
     Dosage: NIET BEKEND, BEHANDELAAR IS LONGARTS IN ST JANSDAL
     Route: 065
     Dates: start: 20240516, end: 20240627
  3. CISPLATIN [Suspect]
     Active Substance: CISPLATIN
     Indication: Non-small cell lung cancer stage IV
     Dosage: BEHANDELING DOOR LONGARTS IN ST JANSDAL
     Route: 065
     Dates: start: 20240516, end: 20240627
  4. LISINOPRIL [Concomitant]
     Active Substance: LISINOPRIL
     Indication: Product used for unknown indication
     Route: 065
  5. FOLIC ACID [Concomitant]
     Active Substance: FOLIC ACID
     Indication: Product used for unknown indication
     Route: 065
  6. HYDROCHLOROTHIAZIDE [Concomitant]
     Active Substance: HYDROCHLOROTHIAZIDE
     Indication: Product used for unknown indication
     Dosage: TABLET, 25 MG (MILLIGRAM)
     Route: 065
  7. ATORVASTATIN [Concomitant]
     Active Substance: ATORVASTATIN
     Indication: Product used for unknown indication
     Dosage: TABLET, 10 MG (MILLIGRAM)
     Route: 065
  8. AMLODIPINE [Concomitant]
     Active Substance: AMLODIPINE BESYLATE
     Indication: Product used for unknown indication
     Dosage: TABLET, 5 MG (MILLIGRAM)
     Route: 065
  9. POLYETHYLENE GLYCOLS [Concomitant]
     Active Substance: POLYETHYLENE GLYCOLS
     Indication: Product used for unknown indication
     Dosage: POEDER, ZO NODIG 1DD1-2
     Route: 065
  10. APIXABAN [Concomitant]
     Active Substance: APIXABAN
     Indication: Product used for unknown indication
     Dosage: 5MG 2DD2
     Route: 065
  11. SUCRALFAAT GRANULAAT [Concomitant]
     Indication: Product used for unknown indication
     Dosage: ZAKJE (GRANULAAT), 1 G (GRAM), 4DD1
     Route: 065
  12. METOCLOPRAMIDE [Concomitant]
     Active Substance: METOCLOPRAMIDE
     Indication: Product used for unknown indication
     Dosage: 10MG ZO NODIG 1 TABLET
     Route: 065
  13. PANTOPRAZOLE SODIUM [Concomitant]
     Active Substance: PANTOPRAZOLE SODIUM
     Indication: Product used for unknown indication
     Dosage: 40MG 2DD2
     Route: 065

REACTIONS (2)
  - Drug eruption [Recovering/Resolving]
  - Drug eruption [Recovering/Resolving]
